FAERS Safety Report 10016690 (Version 2)
Quarter: 2014Q3

REPORT INFORMATION
  Report Type: Spontaneous
  Country: IT (occurrence: IT)
  Receive Date: 20140317
  Receipt Date: 20140702
  Transmission Date: 20150326
  Serious: Yes (Other)
  Sender: FDA-Public Use
  Company Number: IT-009507513-1403ITA006892

PATIENT
  Age: 82 Year
  Sex: Female

DRUGS (9)
  1. FUROSEMIDE. [Suspect]
     Active Substance: FUROSEMIDE
     Dosage: 100 MG, QD
     Route: 048
     Dates: start: 20130601, end: 20140205
  2. LUVION (CANRENONE) [Suspect]
     Active Substance: CANRENONE
     Dosage: 25 MG, QD
     Route: 048
     Dates: start: 20130601, end: 20140205
  3. DEURSIL [Concomitant]
     Active Substance: URSODIOL
     Route: 048
  4. SEQUACOR [Suspect]
     Active Substance: BISOPROLOL
     Dosage: 2.5 MG, QD
     Route: 048
     Dates: start: 20130601, end: 20140205
  5. PLAVIX [Concomitant]
     Active Substance: CLOPIDOGREL BISULFATE
     Route: 048
  6. TORVAST [Concomitant]
     Active Substance: ATORVASTATIN
     Route: 048
  7. PANTORC [Concomitant]
     Active Substance: PANTOPRAZOLE SODIUM
     Route: 048
  8. ASPIRIN. [Concomitant]
     Active Substance: ASPIRIN
  9. NITROGLYCERIN. [Suspect]
     Active Substance: NITROGLYCERIN
     Dosage: 10 MG, QD
     Route: 062
     Dates: start: 20130601, end: 20140205

REACTIONS (1)
  - Syncope [Recovering/Resolving]

NARRATIVE: CASE EVENT DATE: 20140205
